FAERS Safety Report 18709990 (Version 1)
Quarter: 2021Q1

REPORT INFORMATION
  Report Type: Report from Study
  Country: KR (occurrence: KR)
  Receive Date: 20210106
  Receipt Date: 20210106
  Transmission Date: 20210419
  Serious: Yes (Hospitalization)
  Sender: FDA-Public Use
  Company Number: KR-BAXTER-2020BAX025910

PATIENT
  Age: 43 Year
  Sex: Female

DRUGS (2)
  1. EXTRANEAL [Suspect]
     Active Substance: CALCIUM CHLORIDE\ICODEXTRIN\MAGNESIUM CHLORIDE\SODIUM CHLORIDE\SODIUM LACTATE
     Indication: END STAGE RENAL DISEASE
     Route: 033
     Dates: start: 20200323
  2. PHYSIONEAL 2.5% [Suspect]
     Active Substance: CALCIUM CHLORIDE\DEXTROSE\MAGNESIUM CHLORIDE\SODIUM CHLORIDE
     Indication: END STAGE RENAL DISEASE
     Route: 033
     Dates: start: 20200323

REACTIONS (3)
  - Pleural effusion [Unknown]
  - Peritoneal dialysis complication [Recovering/Resolving]
  - Oedema [Recovering/Resolving]

NARRATIVE: CASE EVENT DATE: 202012
